FAERS Safety Report 4928210-5 (Version None)
Quarter: 2006Q1

REPORT INFORMATION
  Report Type: 
  Country: None (occurrence: None)
  Receive Date: 20060223
  Receipt Date: 20060209
  Transmission Date: 20060701
  Serious: Yes (Death, Hospitalization, Other)
  Sender: FDA-Public Use
  Company Number: 2006RR-01489

PATIENT
  Age: 97 Year
  Sex: Female
  Weight: 46.5 kg

DRUGS (8)
  1. METFORMIN HYDROCHLORIDE [Suspect]
     Indication: DIABETES MELLITUS
     Dosage: 1 G, BID, ORAL
     Route: 048
     Dates: start: 20030901, end: 20060103
  2. FRUSEMIDE [Concomitant]
  3. PERINDOPRIL [Concomitant]
  4. DISPERSIBLE ASPIRIN TABLETS (ASPIRIN) [Concomitant]
  5. SIMVASTATIN TABLET (SIMVASTATIN) [Concomitant]
  6. FERROUS SULPHATE TABLET (FERROUS SULFATE) [Concomitant]
  7. CLOPIDOGREL [Concomitant]
  8. LANSOPRAZOLE [Concomitant]

REACTIONS (16)
  - ACUTE MYOCARDIAL INFARCTION [None]
  - ANOREXIA [None]
  - CARDIAC FAILURE CONGESTIVE [None]
  - DIARRHOEA [None]
  - EMPHYSEMA [None]
  - FLUID INTAKE REDUCED [None]
  - HAEMOPTYSIS [None]
  - HYPERKALAEMIA [None]
  - INTERNATIONAL NORMALISED RATIO INCREASED [None]
  - LACTIC ACIDOSIS [None]
  - LOWER RESPIRATORY TRACT INFECTION [None]
  - MITRAL VALVE STENOSIS [None]
  - RENAL FAILURE ACUTE [None]
  - SEPSIS [None]
  - THERAPEUTIC AGENT TOXICITY [None]
  - THIRST DECREASED [None]
